FAERS Safety Report 6386822-9 (Version None)
Quarter: 2009Q4

REPORT INFORMATION
  Report Type: 
  Country: None (occurrence: None)
  Receive Date: 20091002
  Receipt Date: 20090921
  Transmission Date: 20100525
  Serious: Yes (Life-Threatening)
  Sender: FDA-Public Use
  Company Number: D0062736A

PATIENT
  Sex: Female
  Weight: 84 kg

DRUGS (10)
  1. REQUIP [Suspect]
     Indication: PARKINSONISM
     Dosage: 8MG TWICE PER DAY
     Route: 048
     Dates: start: 20000301
  2. REQUIP [Suspect]
     Indication: PARKINSON'S DISEASE
     Dosage: 8MG TWICE PER DAY
     Route: 048
     Dates: start: 20080312
  3. TASMAR [Suspect]
     Route: 065
  4. STALEVO 100 [Concomitant]
     Dosage: 325MG FIVE TIMES PER DAY
     Route: 048
  5. LEVODOPA [Concomitant]
     Dosage: 250MG PER DAY
     Route: 048
  6. IBUFLAM [Concomitant]
     Dosage: 600MG THREE TIMES PER DAY
     Route: 065
  7. PANTOZOL [Concomitant]
     Dosage: 20MG PER DAY
     Route: 065
  8. MAGNESIUM VERLA [Concomitant]
     Route: 048
  9. APRICAL [Concomitant]
     Route: 065
  10. MORPHIN [Concomitant]
     Indication: PAIN
     Dosage: 10MG TWICE PER DAY
     Route: 048

REACTIONS (40)
  - ARTHROPATHY [None]
  - BACK PAIN [None]
  - BURSITIS [None]
  - CARDIAC FAILURE [None]
  - CERVICAL ROOT PAIN [None]
  - DIABETES MELLITUS [None]
  - FEAR [None]
  - FOOT DEFORMITY [None]
  - GASTRITIS [None]
  - GLUCOSE TOLERANCE IMPAIRED [None]
  - HEPATIC STEATOSIS [None]
  - HYPERTENSION [None]
  - HYPERVENTILATION [None]
  - HYPOAESTHESIA [None]
  - ILIOTIBIAL BAND SYNDROME [None]
  - INTERVERTEBRAL DISC PROTRUSION [None]
  - JOINT SPRAIN [None]
  - KYPHOSIS [None]
  - LIP DISCOLOURATION [None]
  - LIVER DISORDER [None]
  - METATARSALGIA [None]
  - MUSCLE DISORDER [None]
  - NODAL OSTEOARTHRITIS [None]
  - OBESITY [None]
  - OSTEOARTHRITIS [None]
  - OSTEOCHONDROSIS [None]
  - PANIC REACTION [None]
  - PARAESTHESIA [None]
  - PIRIFORMIS SYNDROME [None]
  - RADICULOPATHY [None]
  - REFLUX OESOPHAGITIS [None]
  - SCOLIOSIS [None]
  - SENSATION OF HEAVINESS [None]
  - SLEEP DISORDER [None]
  - SOMNOLENCE [None]
  - SPINAL COLUMN STENOSIS [None]
  - SPINAL OSTEOARTHRITIS [None]
  - SPONDYLOLISTHESIS [None]
  - TENDON RUPTURE [None]
  - TREMOR [None]
